FAERS Safety Report 19589796 (Version 2)
Quarter: 2021Q3

REPORT INFORMATION
  Report Type: Report from Study
  Country: US (occurrence: US)
  Receive Date: 20210721
  Receipt Date: 20210805
  Transmission Date: 20211014
  Serious: Yes (Other)
  Sender: FDA-Public Use
  Company Number: US-GILEAD-2021-0541361

PATIENT
  Age: 70 Year
  Sex: Male
  Weight: 77.1 kg

DRUGS (17)
  1. LEXAPRO [Concomitant]
     Active Substance: ESCITALOPRAM OXALATE
  2. PANTOPRAZOLE [Concomitant]
     Active Substance: PANTOPRAZOLE
  3. OLANZAPINE. [Concomitant]
     Active Substance: OLANZAPINE
  4. COVID?19 VACCINE [Concomitant]
  5. LOSARTAN. [Concomitant]
     Active Substance: LOSARTAN
  6. PERMETHRIN. [Concomitant]
     Active Substance: PERMETHRIN
  7. PREDNISONE. [Concomitant]
     Active Substance: PREDNISONE
  8. XOLEGEL [Concomitant]
     Active Substance: KETOCONAZOLE
  9. LENALIDOMIDE [Concomitant]
     Active Substance: LENALIDOMIDE
  10. AUGMENTIN [Concomitant]
     Active Substance: AMOXICILLIN\CLAVULANATE POTASSIUM
  11. TRIAMCINOLONE [Concomitant]
     Active Substance: TRIAMCINOLONE
  12. ALEVE [Concomitant]
     Active Substance: NAPROXEN SODIUM
  13. IDELALISIB [Suspect]
     Active Substance: IDELALISIB
     Indication: FOLLICULAR LYMPHOMA STAGE III
     Dosage: 150 MG, BID
     Route: 048
  14. ASPIRIN 81 [Concomitant]
     Active Substance: ASPIRIN
  15. LEVOFLOXACIN. [Concomitant]
     Active Substance: LEVOFLOXACIN
  16. IVERMECTIN. [Concomitant]
     Active Substance: IVERMECTIN
  17. ONDANSETRON [Concomitant]
     Active Substance: ONDANSETRON

REACTIONS (1)
  - Disease progression [Unknown]
